FAERS Safety Report 9908221 (Version 3)
Quarter: 2014Q2

REPORT INFORMATION
  Report Type: Spontaneous
  Country: IT (occurrence: IT)
  Receive Date: 20140219
  Receipt Date: 20140526
  Transmission Date: 20141212
  Serious: Yes (Other)
  Sender: FDA-Public Use
  Company Number: IT-ASTRAZENECA-2014SE10127

PATIENT
  Age: 29324 Day
  Sex: Male

DRUGS (7)
  1. CANDESARTAN [Suspect]
     Indication: PRODUCT USED FOR UNKNOWN INDICATION
     Route: 048
     Dates: start: 20130101, end: 20131205
  2. HCTZ (NON AZ PRODUCT) [Suspect]
     Route: 065
     Dates: start: 20130101, end: 20131205
  3. ANSIOLIN [Suspect]
     Route: 048
     Dates: start: 20130101, end: 20131205
  4. NITRODERM [Suspect]
     Route: 062
     Dates: start: 20130101, end: 20131205
  5. LOBIVON [Suspect]
     Route: 048
     Dates: start: 20130101, end: 20131205
  6. ASCRIPTIN [Concomitant]
     Route: 048
  7. ALLOPURINOL [Concomitant]
     Route: 048

REACTIONS (3)
  - Syncope [Recovering/Resolving]
  - Cerebral ischaemia [Unknown]
  - Cardiomegaly [Unknown]
